FAERS Safety Report 26035845 (Version 2)
Quarter: 2025Q4

REPORT INFORMATION
  Report Type: Report from Study
  Country: US (occurrence: US)
  Receive Date: 20251112
  Receipt Date: 20251203
  Transmission Date: 20260117
  Serious: No
  Sender: ABBVIE
  Company Number: US-ABBVIE-6539407

PATIENT
  Age: 69 Year
  Sex: Male
  Weight: 77.564 kg

DRUGS (1)
  1. CREON [Suspect]
     Active Substance: PANCRELIPASE AMYLASE\PANCRELIPASE LIPASE\PANCRELIPASE PROTEASE
     Indication: Pancreatic failure
     Dosage: 2 CAPSULE PER MEALS AND 1 PER SNACK
     Route: 048
     Dates: start: 20250705

REACTIONS (3)
  - Paraesthesia [Recovered/Resolved]
  - Joint range of motion decreased [Recovered/Resolved]
  - Paraesthesia [Recovered/Resolved]

NARRATIVE: CASE EVENT DATE: 20250903
